FAERS Safety Report 23447343 (Version 2)
Quarter: 2024Q1

REPORT INFORMATION
  Report Type: Report from Study
  Country: AR (occurrence: AR)
  Receive Date: 20240126
  Receipt Date: 20240131
  Transmission Date: 20240409
  Serious: Yes (Other)
  Sender: FDA-Public Use
  Company Number: AR-JNJFOC-20240154172

PATIENT
  Age: 79 Year
  Sex: Female
  Weight: 58 kg

DRUGS (1)
  1. SIMPONI [Suspect]
     Active Substance: GOLIMUMAB
     Indication: Rheumatoid arthritis
     Route: 041
     Dates: start: 20210314

REACTIONS (2)
  - Breast neoplasm [Recovering/Resolving]
  - Oropharyngeal pain [Unknown]

NARRATIVE: CASE EVENT DATE: 20230101
